FAERS Safety Report 17195396 (Version 2)
Quarter: 2020Q1

REPORT INFORMATION
  Report Type: Spontaneous
  Country: IT (occurrence: IT)
  Receive Date: 20191224
  Receipt Date: 20200104
  Transmission Date: 20200409
  Serious: Yes (Hospitalization, Other)
  Sender: FDA-Public Use
  Company Number: IT-TEVA-2019-IT-1156743

PATIENT
  Age: 75 Year
  Sex: Male

DRUGS (7)
  1. R BENDAMUSTINE [RITUXIMAB] [Suspect]
     Active Substance: RITUXIMAB
     Indication: LYMPHOPLASMACYTOID LYMPHOMA/IMMUNOCYTOMA
     Dosage: 6 CYCLES
     Route: 065
  2. VALGANCICLOVIR HYDROCHLORIDE. [Suspect]
     Active Substance: VALGANCICLOVIR HYDROCHLORIDE
     Dosage: 450 MILLIGRAM DAILY;
     Route: 065
     Dates: start: 20171106, end: 20171112
  3. LEVETIRACETAM. [Suspect]
     Active Substance: LEVETIRACETAM
     Route: 065
  4. R BENDAMUSTINE [BENDAMUSTINE] [Suspect]
     Active Substance: BENDAMUSTINE
  5. FOSCARNET [Suspect]
     Active Substance: FOSCARNET
     Indication: CYTOMEGALOVIRUS INFECTION
     Route: 065
     Dates: start: 20171003, end: 20171016
  6. GANCICLOVIR. [Suspect]
     Active Substance: GANCICLOVIR
     Indication: CYTOMEGALOVIRUS INFECTION
     Dosage: INDUCTION TREATMENT
     Route: 065
     Dates: start: 20170918, end: 20170929
  7. VALGANCICLOVIR HYDROCHLORIDE. [Suspect]
     Active Substance: VALGANCICLOVIR HYDROCHLORIDE
     Indication: CYTOMEGALOVIRUS INFECTION
     Dosage: 900 MILLIGRAM DAILY;
     Route: 065
     Dates: start: 20171021, end: 20171028

REACTIONS (9)
  - Renal impairment [Unknown]
  - Cytomegalovirus colitis [Recovered/Resolved]
  - Cytomegalovirus chorioretinitis [Recovered/Resolved]
  - Encephalitis cytomegalovirus [Recovered/Resolved]
  - Hallucination [Recovered/Resolved]
  - Electrolyte imbalance [Unknown]
  - Cytomegalovirus infection [Recovered/Resolved]
  - Neutropenia [Unknown]
  - Cytomegalovirus gastritis [Recovered/Resolved]
